FAERS Safety Report 4287633-0 (Version None)
Quarter: 2004Q1

REPORT INFORMATION
  Report Type: 
  Country: None (occurrence: None)
  Receive Date: 20040205
  Receipt Date: 20040127
  Transmission Date: 20041129
  Serious: Yes (Other)
  Sender: FDA-Public Use
  Company Number: HQWYE560427JAN04

PATIENT
  Age: 14 Year
  Sex: Female

DRUGS (1)
  1. EFFEXOR [Suspect]
     Indication: MIGRAINE
     Dosage: ORAL
     Route: 048

REACTIONS (11)
  - ANGER [None]
  - DISTURBANCE IN SOCIAL BEHAVIOUR [None]
  - DRUG EFFECT DECREASED [None]
  - FEELING ABNORMAL [None]
  - FEELING JITTERY [None]
  - HEADACHE [None]
  - IMPULSE-CONTROL DISORDER [None]
  - SCREAMING [None]
  - SELF ESTEEM DECREASED [None]
  - SELF MUTILATION [None]
  - SUICIDAL IDEATION [None]
